FAERS Safety Report 4401070-7 (Version None)
Quarter: 2004Q3

REPORT INFORMATION
  Report Type: 
  Country: None (occurrence: None)
  Receive Date: 20040907
  Receipt Date: 20031015
  Transmission Date: 20050211
  Serious: Yes (Hospitalization)
  Sender: FDA-Public Use
  Company Number: US-BRISTOL-MYERS SQUIBB COMPANY-12411906

PATIENT
  Age: 33 Year
  Sex: Female
  Weight: 107 kg

DRUGS (3)
  1. COUMADIN [Suspect]
     Indication: PULMONARY EMBOLISM
     Dosage: DOSE 7.5 MG: 22-AUG-02 TO MAY-02. STOP DATE FOR WARFARIN 30-JUN-02.
     Route: 048
     Dates: start: 20010822, end: 20020630
  2. XANAX [Concomitant]
  3. VITAMIN K TAB [Concomitant]

REACTIONS (4)
  - DIARRHOEA [None]
  - DYSPNOEA [None]
  - HYPERSENSITIVITY [None]
  - MENORRHAGIA [None]
